FAERS Safety Report 10628516 (Version 1)
Quarter: 2014Q4

REPORT INFORMATION
  Report Type: Spontaneous
  Country: US (occurrence: US)
  Receive Date: 20141205
  Receipt Date: 20141205
  Transmission Date: 20150529
  Serious: No
  Sender: FDA-Public Use
  Company Number: US-BRISTOL-MYERS SQUIBB COMPANY-19851682

PATIENT
  Age: 67 Year
  Sex: Male

DRUGS (1)
  1. KOMBIGLYZE XR [Suspect]
     Active Substance: METFORMIN HYDROCHLORIDE\SAXAGLIPTIN HYDROCHLORIDE
     Dosage: 1 DF = 2.5/1000 UNIT NOS. DOSE INCREASED FROM 5/1000 ONCE DAY TO 2.5/1000 BID.
     Dates: start: 201210

REACTIONS (1)
  - Blood glucose increased [Unknown]
